FAERS Safety Report 19562272 (Version 1)
Quarter: 2021Q3

REPORT INFORMATION
  Report Type: Spontaneous
  Country: ES (occurrence: ES)
  Receive Date: 20210714
  Receipt Date: 20210714
  Transmission Date: 20211014
  Serious: Yes (Life-Threatening, Other)
  Sender: FDA-Public Use
  Company Number: ES-ELI_LILLY_AND_COMPANY-ES202107004750

PATIENT
  Age: 50 Year
  Sex: Female

DRUGS (4)
  1. OMEPRAZOL [OMEPRAZOLE] [Concomitant]
     Active Substance: OMEPRAZOLE
     Indication: DYSPEPSIA
     Dosage: 20 MG, UNKNOWN
     Route: 048
     Dates: start: 20190525
  2. DAIVOBET [BETAMETHASONE DIPROPIONATE;CALCIPOT [Concomitant]
     Indication: PSORIASIS
     Dosage: 1 DOSAGE FORM, DAILY
     Route: 061
     Dates: start: 20200317
  3. FURANTOINA [Concomitant]
     Indication: URINARY TRACT INFECTION
     Dosage: 50 MG, DAILY
     Route: 048
     Dates: start: 20210318
  4. IXEKIZUMAB [Suspect]
     Active Substance: IXEKIZUMAB
     Indication: PSORIASIS
     Dosage: 1 DOSAGE FORM, EVERY 28 DAYS
     Route: 058
     Dates: start: 20201029, end: 20210513

REACTIONS (1)
  - Injection site hypersensitivity [Recovered/Resolved]

NARRATIVE: CASE EVENT DATE: 20210415
